FAERS Safety Report 18251390 (Version 4)
Quarter: 2020Q4

REPORT INFORMATION
  Report Type: Spontaneous
  Country: JP (occurrence: JP)
  Receive Date: 20200910
  Receipt Date: 20201216
  Transmission Date: 20210113
  Serious: Yes (Other)
  Sender: FDA-Public Use
  Company Number: NVSJ2020JP008688

PATIENT
  Age: 89 Year
  Sex: Female

DRUGS (4)
  1. EYLEA [Suspect]
     Active Substance: AFLIBERCEPT
     Indication: POLYPOIDAL CHOROIDAL VASCULOPATHY
     Dosage: 32 TIMES
     Route: 031
     Dates: end: 20200515
  2. BEOVU [Suspect]
     Active Substance: BROLUCIZUMAB-DBLL
     Indication: AGE-RELATED MACULAR DEGENERATION
  3. EYLEA [Suspect]
     Active Substance: AFLIBERCEPT
     Indication: AGE-RELATED MACULAR DEGENERATION
  4. BEOVU [Suspect]
     Active Substance: BROLUCIZUMAB-DBLL
     Indication: POLYPOIDAL CHOROIDAL VASCULOPATHY
     Dosage: 6 MG,RIGHT EYE
     Route: 031
     Dates: start: 20200626, end: 20200626

REACTIONS (6)
  - Iritis [Recovered/Resolved]
  - Product use in unapproved indication [Unknown]
  - Serous retinal detachment [Recovered/Resolved]
  - Polypoidal choroidal vasculopathy [Unknown]
  - Age-related macular degeneration [Unknown]
  - Disease progression [Unknown]

NARRATIVE: CASE EVENT DATE: 20200710
